FAERS Safety Report 17287227 (Version 6)
Quarter: 2020Q4

REPORT INFORMATION
  Report Type: Report from Study
  Country: BR (occurrence: BR)
  Receive Date: 20200120
  Receipt Date: 20201222
  Transmission Date: 20210113
  Serious: Yes (Hospitalization)
  Sender: FDA-Public Use
  Company Number: BR-ROCHE-2507042

PATIENT
  Age: 57 Year
  Sex: Female
  Weight: 56.2 kg

DRUGS (55)
  1. OCRELIZUMAB. [Suspect]
     Active Substance: OCRELIZUMAB
     Route: 042
     Dates: start: 20161019, end: 20161019
  2. OCRELIZUMAB. [Suspect]
     Active Substance: OCRELIZUMAB
     Route: 042
     Dates: start: 20190722, end: 20190722
  3. OCRELIZUMAB. [Suspect]
     Active Substance: OCRELIZUMAB
     Route: 042
     Dates: start: 20200713, end: 20200713
  4. OCRELIZUMAB. [Suspect]
     Active Substance: OCRELIZUMAB
     Route: 042
     Dates: start: 20150521, end: 20150521
  5. LORATADIN [Concomitant]
     Active Substance: LORATADINE
     Dates: start: 20120816
  6. SIMVASTATIN. [Concomitant]
     Active Substance: SIMVASTATIN
  7. OCRELIZUMAB. [Suspect]
     Active Substance: OCRELIZUMAB
     Route: 042
     Dates: start: 20161103, end: 20161103
  8. OCRELIZUMAB. [Suspect]
     Active Substance: OCRELIZUMAB
     Route: 042
     Dates: start: 20170406, end: 20170406
  9. OCRELIZUMAB. [Suspect]
     Active Substance: OCRELIZUMAB
     Indication: PRIMARY PROGRESSIVE MULTIPLE SCLEROSIS
     Route: 042
     Dates: start: 20130801, end: 20130801
  10. OCRELIZUMAB. [Suspect]
     Active Substance: OCRELIZUMAB
     Route: 042
     Dates: start: 20131226, end: 20131226
  11. LORATADINA [Concomitant]
     Active Substance: LORATADINE
     Dates: start: 20130214
  12. CALCIUM CARBONATE. [Concomitant]
     Active Substance: CALCIUM CARBONATE
     Indication: OSTEOPOROSIS
     Dates: start: 20170915
  13. LORATADINA [Concomitant]
     Active Substance: LORATADINE
     Dates: start: 20130131
  14. DIPIRONE [Concomitant]
     Active Substance: METAMIZOLE SODIUM
     Indication: PAIN
     Dates: start: 20200921, end: 20200921
  15. KETOPROFEN. [Concomitant]
     Active Substance: KETOPROFEN
     Indication: UPPER RESPIRATORY TRACT INFECTION
     Dates: start: 20130819, end: 20130823
  16. KETOPROFEN. [Concomitant]
     Active Substance: KETOPROFEN
     Indication: INFLAMMATION
     Dates: start: 20200921
  17. OCRELIZUMAB. [Suspect]
     Active Substance: OCRELIZUMAB
     Route: 042
     Dates: start: 20180308, end: 20180308
  18. OCRELIZUMAB. [Suspect]
     Active Substance: OCRELIZUMAB
     Route: 042
     Dates: start: 20151118, end: 20151118
  19. OCRELIZUMAB. [Suspect]
     Active Substance: OCRELIZUMAB
     Route: 042
     Dates: start: 20170419, end: 20170419
  20. OCRELIZUMAB. [Suspect]
     Active Substance: OCRELIZUMAB
     Route: 042
     Dates: start: 20170921, end: 20170921
  21. DEXAMETHASONE. [Concomitant]
     Active Substance: DEXAMETHASONE
     Dates: start: 20151118
  22. LORATADINA [Concomitant]
     Active Substance: LORATADINE
     Dates: start: 20130801
  23. LORATADINA [Concomitant]
     Active Substance: LORATADINE
     Dates: start: 20130718
  24. CHOLECALCIFEROL [Concomitant]
     Active Substance: CHOLECALCIFEROL
     Dates: start: 20160519
  25. OCRELIZUMAB. [Suspect]
     Active Substance: OCRELIZUMAB
     Route: 042
     Dates: start: 20180822, end: 20180822
  26. OCRELIZUMAB. [Suspect]
     Active Substance: OCRELIZUMAB
     Route: 042
     Dates: start: 20150603, end: 20150603
  27. OCRELIZUMAB. [Suspect]
     Active Substance: OCRELIZUMAB
     Route: 042
     Dates: start: 20141204, end: 20141204
  28. OCRELIZUMAB. [Suspect]
     Active Substance: OCRELIZUMAB
     Route: 042
     Dates: start: 20120816, end: 20120816
  29. OCRELIZUMAB. [Suspect]
     Active Substance: OCRELIZUMAB
     Route: 042
     Dates: start: 20141218, end: 20141218
  30. METHYLPREDNISOLONE. [Concomitant]
     Active Substance: METHYLPREDNISOLONE
     Dates: start: 20160505
  31. GABAPENTIN. [Concomitant]
     Active Substance: GABAPENTIN
  32. OXIBUTIN [Concomitant]
  33. DIPIRONE [Concomitant]
     Active Substance: METAMIZOLE SODIUM
     Indication: PROPHYLAXIS
     Dates: start: 20130805, end: 20130818
  34. OMEPRAZOLE. [Concomitant]
     Active Substance: OMEPRAZOLE
     Indication: PROPHYLAXIS
     Dates: start: 20170114, end: 20170117
  35. OCRELIZUMAB. [Suspect]
     Active Substance: OCRELIZUMAB
     Route: 042
     Dates: start: 20160505, end: 20160505
  36. OCRELIZUMAB. [Suspect]
     Active Substance: OCRELIZUMAB
     Route: 042
     Dates: start: 20160518, end: 20160518
  37. OCRELIZUMAB. [Suspect]
     Active Substance: OCRELIZUMAB
     Route: 042
     Dates: start: 20200109, end: 20200109
  38. OCRELIZUMAB. [Suspect]
     Active Substance: OCRELIZUMAB
     Route: 042
     Dates: start: 20140703, end: 20140703
  39. OCRELIZUMAB. [Suspect]
     Active Substance: OCRELIZUMAB
     Route: 042
     Dates: start: 20130214, end: 20130214
  40. OCRELIZUMAB. [Suspect]
     Active Substance: OCRELIZUMAB
     Route: 042
     Dates: start: 20130718, end: 20130718
  41. OCRELIZUMAB. [Suspect]
     Active Substance: OCRELIZUMAB
     Route: 042
     Dates: start: 20140620, end: 20140620
  42. OCRELIZUMAB. [Suspect]
     Active Substance: OCRELIZUMAB
     Route: 042
     Dates: start: 20120830, end: 20120830
  43. OCRELIZUMAB. [Suspect]
     Active Substance: OCRELIZUMAB
     Route: 042
     Dates: start: 20130131, end: 20130131
  44. LORATADIN [Concomitant]
     Active Substance: LORATADINE
     Dates: start: 20120830
  45. LORATADINE. [Concomitant]
     Active Substance: LORATADINE
     Dates: start: 20140703
  46. LORATADINE. [Concomitant]
     Active Substance: LORATADINE
     Dates: start: 20140603
  47. BACLOFEN. [Concomitant]
     Active Substance: BACLOFEN
     Indication: MUSCLE SPASMS
     Dates: start: 20151203, end: 20160427
  48. DIPIRONE [Concomitant]
     Active Substance: METAMIZOLE SODIUM
     Indication: UPPER RESPIRATORY TRACT INFECTION
     Dates: start: 20170116, end: 20170117
  49. OMEPRAZOLE. [Concomitant]
     Active Substance: OMEPRAZOLE
     Dates: start: 20200921, end: 20200922
  50. OCRELIZUMAB. [Suspect]
     Active Substance: OCRELIZUMAB
     Indication: PRIMARY PROGRESSIVE MULTIPLE SCLEROSIS
     Route: 042
     Dates: start: 20151202, end: 20151202
  51. OCRELIZUMAB. [Suspect]
     Active Substance: OCRELIZUMAB
     Route: 042
     Dates: start: 20190206, end: 20190206
  52. OCRELIZUMAB. [Suspect]
     Active Substance: OCRELIZUMAB
     Route: 042
     Dates: start: 20140131, end: 20140131
  53. DEXAMETHASONE. [Concomitant]
     Active Substance: DEXAMETHASONE
     Dates: start: 20151202
  54. LORATADINE. [Concomitant]
     Active Substance: LORATADINE
     Dates: start: 20151202
  55. PARACETAMOL [Concomitant]
     Active Substance: ACETAMINOPHEN
     Dates: start: 20130801

REACTIONS (1)
  - Pyelonephritis [Recovered/Resolved]

NARRATIVE: CASE EVENT DATE: 20191216
